FAERS Safety Report 8305074-3 (Version None)
Quarter: 2012Q2

REPORT INFORMATION
  Report Type: 
  Country: None (occurrence: None)
  Receive Date: 20120412
  Receipt Date: 20120329
  Transmission Date: 20120825
  Serious: Yes (Death, Life-Threatening, Hospitalization, Disabling)
  Sender: FDA-Public Use
  Company Number: WSDF_00597

PATIENT
  Sex: Female
  Weight: 56.6996 kg

DRUGS (1)
  1. WINRHO SDF [Suspect]
     Indication: IDIOPATHIC THROMBOCYTOPENIC PURPURA
     Dosage: 70.55 ?G TOTAL INTRAVENOUS (NOT OTHERWISE SPECIFIED)
     Dates: start: 20061108, end: 20061108

REACTIONS (40)
  - PAIN IN EXTREMITY [None]
  - TROPONIN INCREASED [None]
  - CHEST PAIN [None]
  - GALLBLADDER DISORDER [None]
  - MENTAL IMPAIRMENT [None]
  - CONFUSIONAL STATE [None]
  - LUNG INFILTRATION [None]
  - INFECTION [None]
  - MENINGITIS [None]
  - URINARY TRACT INFECTION [None]
  - HAEMOLYTIC ANAEMIA [None]
  - SOMNOLENCE [None]
  - TRANSFUSION REACTION [None]
  - CHILLS [None]
  - METABOLIC ENCEPHALOPATHY [None]
  - MARROW HYPERPLASIA [None]
  - SINUS TACHYCARDIA [None]
  - AUTOIMMUNE THROMBOCYTOPENIA [None]
  - CEREBRAL HAEMORRHAGE [None]
  - CARDIO-RESPIRATORY ARREST [None]
  - ABDOMINAL PAIN [None]
  - DEPRESSED LEVEL OF CONSCIOUSNESS [None]
  - UNRESPONSIVE TO STIMULI [None]
  - PNEUMONIA ASPIRATION [None]
  - STATUS EPILEPTICUS [None]
  - FIBRIN D DIMER INCREASED [None]
  - NAUSEA [None]
  - LETHARGY [None]
  - CEREBRAL ATROPHY [None]
  - BLOOD FIBRINOGEN INCREASED [None]
  - EMBOLIC STROKE [None]
  - BRAIN STEM SYNDROME [None]
  - PROTHROMBIN TIME PROLONGED [None]
  - LEUKOCYTOSIS [None]
  - EPIGASTRIC DISCOMFORT [None]
  - CEREBELLAR HAEMORRHAGE [None]
  - OVERDOSE [None]
  - CEREBROVASCULAR DISORDER [None]
  - DRUG INEFFECTIVE [None]
  - PLATELET MORPHOLOGY ABNORMAL [None]
